FAERS Safety Report 16191227 (Version 5)
Quarter: 2019Q3

REPORT INFORMATION
  Report Type: Report from Study
  Country: US (occurrence: US)
  Receive Date: 20190412
  Receipt Date: 20190725
  Transmission Date: 20191004
  Serious: Yes (Hospitalization)
  Sender: FDA-Public Use
  Company Number: US-ACTELION-A-US2019-188949

PATIENT
  Age: 6 Month
  Sex: Female

DRUGS (16)
  1. TRACLEER [Suspect]
     Active Substance: BOSENTAN
     Indication: PULMONARY HYPERTENSION
     Dosage: 13 MG, BID
     Route: 048
     Dates: start: 20190113
  2. REVATIO [Suspect]
     Active Substance: SILDENAFIL CITRATE
     Dosage: 16.5 MG, QD
     Route: 048
  3. POLYSPORIN [Concomitant]
     Active Substance: BACITRACIN ZINC\POLYMYXIN B SULFATE
     Dosage: UNK, PRN
  4. SODIUM CHLORIDE. [Concomitant]
     Active Substance: SODIUM CHLORIDE
     Dosage: 3 ML, BID
  5. REVATIO [Suspect]
     Active Substance: SILDENAFIL CITRATE
     Indication: PRODUCT USED FOR UNKNOWN INDICATION
     Dosage: 13 MG, TID
     Route: 065
  6. REVATIO [Suspect]
     Active Substance: SILDENAFIL CITRATE
     Dosage: 2 MG/KG
     Route: 065
  7. DIURIL [Concomitant]
     Active Substance: CHLOROTHIAZIDE
     Dosage: 100 MG, BID
  8. CLONIDINE. [Concomitant]
     Active Substance: CLONIDINE
     Dosage: UNK, PRN
  9. LASIX [Concomitant]
     Active Substance: FUROSEMIDE
     Dosage: 3 MG, BID
  10. TRACLEER [Suspect]
     Active Substance: BOSENTAN
     Dosage: 32 MG 2ML BID
     Route: 048
     Dates: start: 20190113
  11. POTASSIUM CHLORIDE. [Concomitant]
     Active Substance: POTASSIUM CHLORIDE
  12. TRACLEER [Suspect]
     Active Substance: BOSENTAN
     Dosage: 2 MG/K
     Route: 048
  13. BUDESONIDE. [Concomitant]
     Active Substance: BUDESONIDE
     Dosage: UNK, PRN
  14. SPIRONOLACTONE. [Concomitant]
     Active Substance: SPIRONOLACTONE
     Dosage: 1.4 MG, BID
  15. CHLOROTHIAZIDE. [Concomitant]
     Active Substance: CHLOROTHIAZIDE
     Dosage: 100 MG, BID
  16. ALBUTEROL. [Concomitant]
     Active Substance: ALBUTEROL
     Dosage: UNK

REACTIONS (7)
  - Mechanical ventilation complication [Recovered/Resolved]
  - Enterovirus infection [Recovered/Resolved]
  - Dyspnoea [Recovered/Resolved]
  - Rhinovirus infection [Recovered/Resolved]
  - Respiratory tract infection viral [Recovered/Resolved]
  - Neonatal respiratory distress syndrome [Recovered/Resolved]
  - Human metapneumovirus test positive [Recovered/Resolved]

NARRATIVE: CASE EVENT DATE: 20190208
